FAERS Safety Report 19820471 (Version 1)
Quarter: 2021Q3

REPORT INFORMATION
  Report Type: Spontaneous
  Country: US (occurrence: US)
  Receive Date: 20210911
  Receipt Date: 20210911
  Transmission Date: 20211014
  Serious: Yes (Hospitalization)
  Sender: FDA-Public Use
  Company Number: None

PATIENT
  Age: 95 Year
  Sex: Female
  Weight: 49.3 kg

DRUGS (1)
  1. BACTRIM [Suspect]
     Active Substance: SULFAMETHOXAZOLE\TRIMETHOPRIM
     Dates: start: 20210817

REACTIONS (5)
  - Confusional state [None]
  - Acute kidney injury [None]
  - Hypoglycaemia [None]
  - Toxicity to various agents [None]
  - Hyperkalaemia [None]

NARRATIVE: CASE EVENT DATE: 20210822
